FAERS Safety Report 20817953 (Version 1)
Quarter: 2022Q2

REPORT INFORMATION
  Report Type: Spontaneous
  Country: US (occurrence: None)
  Receive Date: 20220511
  Receipt Date: 20220511
  Transmission Date: 20220720
  Serious: Yes (Death)
  Sender: FDA-Public Use
  Company Number: None

PATIENT
  Age: 90 Year
  Sex: Male
  Weight: 73.03 kg

DRUGS (7)
  1. ABIRATERONE [Suspect]
     Active Substance: ABIRATERONE
     Indication: Prostate cancer
     Dosage: FREQUENCY : DAILY;?
     Route: 048
     Dates: start: 20201005
  2. PREDNISONE [Suspect]
     Active Substance: PREDNISONE
     Indication: Prostate cancer
  3. BICALUTAMIDE [Concomitant]
  4. CALCIUM-VITAMIN D [Concomitant]
  5. ELIQUIS [Concomitant]
     Active Substance: APIXABAN
  6. TAMSULOSIN [Concomitant]
     Active Substance: TAMSULOSIN
  7. XTANDI [Concomitant]

REACTIONS (1)
  - Death [None]
